FAERS Safety Report 15190583 (Version 2)
Quarter: 2018Q3

REPORT INFORMATION
  Report Type: Spontaneous
  Country: JP (occurrence: JP)
  Receive Date: 20180724
  Receipt Date: 20180914
  Transmission Date: 20181010
  Serious: Yes (Life-Threatening, Other)
  Sender: FDA-Public Use
  Company Number: JP-GLAXOSMITHKLINE-JP2018JPN128825

PATIENT
  Age: 67 Year
  Sex: Female
  Weight: 35 kg

DRUGS (12)
  1. ZOVIRAX [Suspect]
     Active Substance: ACYCLOVIR
     Indication: HERPES ZOSTER
     Dosage: 250 MG, TID
     Route: 041
     Dates: start: 20180607, end: 20180611
  2. HALCION [Concomitant]
     Active Substance: TRIAZOLAM
     Dosage: UNK
  3. SIGMART [Concomitant]
     Active Substance: NICORANDIL
     Dosage: UNK
  4. ULTIBRO [Concomitant]
     Active Substance: GLYCOPYRRONIUM\INDACATEROL
     Dosage: UNK
  5. SRENDAM OINTMENT [Concomitant]
     Dosage: UNK
  6. ALINAMIN F [Concomitant]
     Active Substance: FURSULTIAMINE HYDROCHLORIDE
     Dosage: UNK
  7. MUCOSTA [Concomitant]
     Active Substance: REBAMIPIDE
     Dosage: UNK
  8. THYRADIN S [Concomitant]
     Active Substance: LEVOTHYROXINE SODIUM
     Dosage: UNK
  9. HOKUNALIN TAPE [Concomitant]
     Active Substance: TULOBUTEROL
     Dosage: UNK
  10. SENNA [Concomitant]
     Active Substance: SENNA LEAF\SENNOSIDES\SENNOSIDES A AND B
     Dosage: UNK
  11. BAYASPIRIN [Concomitant]
     Active Substance: ASPIRIN
     Dosage: UNK
  12. LOXOPROFEN [Concomitant]
     Active Substance: LOXOPROFEN
     Dosage: UNK

REACTIONS (4)
  - Interstitial lung disease [Recovering/Resolving]
  - Incorrect dose administered [Unknown]
  - Dyspnoea [Recovering/Resolving]
  - Prescribed overdose [Unknown]

NARRATIVE: CASE EVENT DATE: 20180607
